FAERS Safety Report 12933078 (Version 4)
Quarter: 2017Q1

REPORT INFORMATION
  Report Type: Report from Study
  Country: US (occurrence: US)
  Receive Date: 20161111
  Receipt Date: 20170118
  Transmission Date: 20170428
  Serious: Yes (Life-Threatening, Hospitalization, Other)
  Sender: FDA-Public Use
  Company Number: US-BRISTOL-MYERS SQUIBB COMPANY-BMS-2016-094854

PATIENT
  Age: 62 Year
  Sex: Male

DRUGS (4)
  1. NIVOLUMAB [Suspect]
     Active Substance: NIVOLUMAB
     Indication: PLASMA CELL MYELOMA
     Dosage: 3 MG/KG, UNK
     Route: 042
     Dates: start: 20161031, end: 20161121
  2. IPILIMUMAB [Suspect]
     Active Substance: IPILIMUMAB
     Indication: PLASMA CELL MYELOMA
     Dosage: 1 MG/KG, UNK
     Route: 042
     Dates: start: 20161031, end: 20161121
  3. METHYLPREDNISOLONE. [Concomitant]
     Active Substance: METHYLPREDNISOLONE
     Indication: PRODUCT USED FOR UNKNOWN INDICATION
     Dosage: UNK
     Route: 065
     Dates: start: 20161105
  4. HYDROCORTISONE. [Concomitant]
     Active Substance: HYDROCORTISONE
     Indication: PRODUCT USED FOR UNKNOWN INDICATION
     Dosage: UNK
     Route: 065
     Dates: start: 20161105

REACTIONS (3)
  - Adrenocortical insufficiency acute [Recovered/Resolved]
  - Septic shock [Unknown]
  - Hypotension [Recovered/Resolved]

NARRATIVE: CASE EVENT DATE: 20161104
